FAERS Safety Report 8287546-3 (Version None)
Quarter: 2012Q2

REPORT INFORMATION
  Report Type: 
  Country: None (occurrence: None)
  Receive Date: 20120416
  Receipt Date: 20120411
  Transmission Date: 20120825
  Serious: Yes (Hospitalization, Other)
  Sender: FDA-Public Use
  Company Number: US-ASTRAZENECA-2009UW01866

PATIENT
  Age: 52 Year
  Sex: Female
  Weight: 77.1 kg

DRUGS (9)
  1. DIABETES MEDS [Concomitant]
  2. ATIVAN [Concomitant]
  3. CHOLESTEROL MEDS [Concomitant]
  4. PROZAC [Concomitant]
  5. BLOOD PRESSURE MEDS [Concomitant]
  6. PAIN MEDS [Concomitant]
  7. SEROQUEL [Suspect]
     Route: 048
     Dates: start: 20080609, end: 20090106
  8. SEROQUEL [Suspect]
     Indication: BIPOLAR DISORDER
     Route: 048
  9. SEROQUEL [Suspect]
     Route: 048

REACTIONS (17)
  - TRANSIENT ISCHAEMIC ATTACK [None]
  - DEPRESSION [None]
  - DIABETES MELLITUS [None]
  - WRONG TECHNIQUE IN DRUG USAGE PROCESS [None]
  - SUICIDAL IDEATION [None]
  - SUICIDE ATTEMPT [None]
  - TACHYPHRENIA [None]
  - INSOMNIA [None]
  - FEELING ABNORMAL [None]
  - MUSCLE SPASMS [None]
  - PANIC ATTACK [None]
  - BLOOD CHOLESTEROL INCREASED [None]
  - INTENTIONAL DRUG MISUSE [None]
  - MOOD SWINGS [None]
  - ADVERSE EVENT [None]
  - CEREBROVASCULAR ACCIDENT [None]
  - MALAISE [None]
